FAERS Safety Report 14034069 (Version 1)
Quarter: 2017Q4

REPORT INFORMATION
  Report Type: Spontaneous
  Country: US (occurrence: US)
  Receive Date: 20171003
  Receipt Date: 20171003
  Transmission Date: 20180321
  Serious: No
  Sender: FDA-Public Use
  Company Number: US-TEVA-794677USA

PATIENT
  Sex: Female

DRUGS (22)
  1. TRETONIN [Concomitant]
     Indication: ACNE
  2. NEOMYCIN SULFATE, POLYMYXIN B SULFATE AND DEXAMETHASONE [Concomitant]
     Active Substance: DEXAMETHASONE\NEOMYCIN SULFATE\POLYMYXIN B SULFATE
     Indication: BLEPHARITIS
     Dosage: 3.5 GRAM DAILY; NIGHT. (LASHLINE), LEFT EYE-CORNER ALSO
  3. LEVONEST [Concomitant]
     Active Substance: ETHINYL ESTRADIOL\LEVONORGESTREL
     Indication: FIBROCYSTIC BREAST DISEASE
  4. THERA TEARS PF EYE DROPS [Concomitant]
     Indication: DRY EYE
     Dosage: AM/PM
  5. BAUSCH AND LOMB PF [Concomitant]
     Indication: DRY EYE
     Dosage: 1X NIGHT CORNERS RIGHT EYE
  6. PRO BIOTIC ACIDOLIPHUS [Concomitant]
     Indication: ANTIFUNGAL PROPHYLAXIS
     Dosage: 1 TABLET, 20 BILLION, 10 STRAINS
  7. ATENOLOL. [Concomitant]
     Active Substance: ATENOLOL
     Indication: BLOOD PRESSURE MEASUREMENT
     Dosage: 25 MILLIGRAM DAILY; NIGHT
  8. THERA TEARS OMEGA 300 [Concomitant]
     Indication: DRY EYE
     Dosage: 1200 MILLIGRAM DAILY;
  9. ALREX [Concomitant]
     Active Substance: LOTEPREDNOL ETABONATE
     Indication: BLEPHARITIS
     Dosage: .2 PERCENT DAILY; NIGHT
  10. MINOCYCLINE HCL [Concomitant]
     Active Substance: MINOCYCLINE HYDROCHLORIDE
     Indication: BLEPHARITIS
     Dosage: 150 MILLIGRAM DAILY;
  11. VALTREX [Concomitant]
     Active Substance: VALACYCLOVIR HYDROCHLORIDE
     Indication: OPHTHALMIC HERPES ZOSTER
     Dosage: 500 MILLIGRAM DAILY;
  12. BENZOYL PEROXIDE W/CLINDAMYCIN [Concomitant]
     Indication: ACNE CYSTIC
     Dosage: 1-5%
  13. TYLENOL [Concomitant]
     Active Substance: ACETAMINOPHEN
     Indication: PAIN
  14. TUMERIC [Concomitant]
     Active Substance: HERBALS\TURMERIC
     Indication: TRIGEMINAL NEURALGIA
     Dosage: 450 MILLIGRAM DAILY;
  15. VITAMIN B12 [Concomitant]
     Active Substance: CYANOCOBALAMIN
     Indication: VITAMIN B12 DEFICIENCY
  16. VITAMIN C [Concomitant]
     Active Substance: ASCORBIC ACID
     Indication: VITAMIN SUPPLEMENTATION
     Dosage: 500 MILLIGRAM DAILY;
  17. VITAMIN D3 [Concomitant]
     Active Substance: CHOLECALCIFEROL
     Indication: VITAMIN SUPPLEMENTATION
     Dosage: 2000 MILLIGRAM DAILY;
  18. CLONAZEPAM. [Suspect]
     Active Substance: CLONAZEPAM
     Indication: TRIGEMINAL NEURALGIA
     Dosage: 1/2 PILL AT NIGHT
     Route: 048
  19. LOTEMAX [Concomitant]
     Active Substance: LOTEPREDNOL ETABONATE
     Indication: BLEPHARITIS
     Dosage: (LASH LINE L EYE) RARELY HAVE TO USE
  20. ALPHA LIPOIC ACID [Concomitant]
     Active Substance: .ALPHA.-LIPOIC ACID
     Indication: TRIGEMINAL NEURALGIA
     Dosage: 600 MILLIGRAM DAILY;
  21. EXCEDRIN MIGRAINE [Concomitant]
     Active Substance: ACETAMINOPHEN\ASPIRIN\CAFFEINE
     Indication: HEADACHE
  22. MAGNESIUM [Concomitant]
     Active Substance: MAGNESIUM
     Indication: TRIGEMINAL NEURALGIA
     Dosage: 500 MILLIGRAM DAILY;

REACTIONS (7)
  - Toothache [Unknown]
  - Drug effect decreased [Unknown]
  - Off label use [Unknown]
  - Drug dispensing error [Unknown]
  - Product substitution issue [Unknown]
  - Cough [Recovering/Resolving]
  - Neuralgia [Unknown]
